FAERS Safety Report 5289541-5 (Version None)
Quarter: 2007Q1

REPORT INFORMATION
  Report Type: 
  Country: None (occurrence: None)
  Receive Date: 20070119
  Receipt Date: 20060929
  Transmission Date: 20070707
  Serious: Yes (Other)
  Sender: FDA-Public Use
  Company Number: HQWYE944520SEP06

PATIENT
  Age: 84 Year
  Sex: Female
  Weight: 74.91 kg

DRUGS (4)
  1. ADVIL PM [Suspect]
     Indication: INSOMNIA
     Dosage: SEE IMAGE
     Route: 048
     Dates: start: 20060801, end: 20060801
  2. ADVIL PM [Suspect]
     Indication: INSOMNIA
     Dosage: SEE IMAGE
     Route: 048
     Dates: start: 20060917, end: 20060917
  3. LOTREL [Concomitant]
  4. BENICAR [Concomitant]

REACTIONS (1)
  - DRUG INEFFECTIVE [None]
